FAERS Safety Report 5360387-2 (Version None)
Quarter: 2007Q2

REPORT INFORMATION
  Report Type: 
  Country: None (occurrence: None)
  Receive Date: 20070614
  Receipt Date: 20070529
  Transmission Date: 20071010
  Serious: Yes (Other)
  Sender: FDA-Public Use
  Company Number: 2007BI002517

PATIENT
  Age: 44 Year
  Sex: Female

DRUGS (4)
  1. AVONEX [Suspect]
     Indication: MULTIPLE SCLEROSIS
     Dosage: 30 UG;QW;IM
     Route: 030
     Dates: start: 19960801
  2. AVONEX [Suspect]
     Indication: MULTIPLE SCLEROSIS
     Dosage: 30 UG;QW;IM
     Route: 030
  3. BACLOFEN [Concomitant]
  4. ZENAFLEX [Concomitant]

REACTIONS (7)
  - ACCIDENT AT WORK [None]
  - ANKLE FRACTURE [None]
  - FALL [None]
  - JOINT RANGE OF MOTION DECREASED [None]
  - LIGAMENT RUPTURE [None]
  - LOWER LIMB FRACTURE [None]
  - MULTIPLE SCLEROSIS RELAPSE [None]
